FAERS Safety Report 13225092 (Version 1)
Quarter: 2017Q1

REPORT INFORMATION
  Report Type: Other
  Country: JP (occurrence: JP)
  Receive Date: 20170213
  Receipt Date: 20170213
  Transmission Date: 20170428
  Serious: Yes (Hospitalization)
  Sender: FDA-Public Use
  Company Number: JP-AJANTA PHARMA USA INC.-1063009

PATIENT
  Age: 27 Year
  Sex: Female

DRUGS (1)
  1. OLANZAPINE (ANDA 206711) [Suspect]
     Active Substance: OLANZAPINE
     Indication: PANIC DISORDER

REACTIONS (4)
  - Central nervous system lesion [Recovered/Resolved]
  - Neuroleptic malignant syndrome [Recovered/Resolved]
  - Encephalopathy [Recovered/Resolved]
  - Hyperosmolar hyperglycaemic state [Recovered/Resolved]

NARRATIVE: CASE EVENT DATE: 20161030
